FAERS Safety Report 15980704 (Version 3)
Quarter: 2019Q1

REPORT INFORMATION
  Report Type: Spontaneous
  Country: JP (occurrence: JP)
  Receive Date: 20190219
  Receipt Date: 20190314
  Transmission Date: 20190418
  Serious: Yes (Congenital Anomaly, Other)
  Sender: FDA-Public Use
  Company Number: JP-MYLANLABS-2019M1014815

PATIENT
  Age: 1 Day

DRUGS (5)
  1. IMMUNOGLOBULIN I.V [Concomitant]
     Active Substance: HUMAN IMMUNOGLOBULIN G
     Dosage: UNK
     Route: 042
  2. PENICILLIN                         /00000901/ [Concomitant]
     Active Substance: PENICILLIN G
     Indication: CONGENITAL SYPHILIS
     Route: 042
  3. AMPICILLIN SODIUM. [Concomitant]
     Active Substance: AMPICILLIN SODIUM
     Indication: CONGENITAL INFECTION
     Dosage: UNK
     Route: 065
  4. TOBI [Suspect]
     Active Substance: TOBRAMYCIN
     Indication: CONGENITAL SYPHILIS
     Dosage: UNK
     Route: 055
  5. VICCILLIN                          /00000501/ [Concomitant]
     Indication: CONGENITAL SYPHILIS
     Route: 042

REACTIONS (6)
  - Concomitant disease progression [Unknown]
  - Congenital syphilis [Unknown]
  - Use of accessory respiratory muscles [Unknown]
  - Jarisch-Herxheimer reaction [Unknown]
  - Disease progression [Unknown]
  - Neonatal tachypnoea [Unknown]
